FAERS Safety Report 21302598 (Version 1)
Quarter: 2022Q3

REPORT INFORMATION
  Report Type: Spontaneous
  Country: US (occurrence: None)
  Receive Date: 20220906
  Receipt Date: 20220906
  Transmission Date: 20221027
  Serious: Yes (Disabling)
  Sender: FDA-Public Use
  Company Number: None

PATIENT
  Age: 47 Year
  Sex: Female
  Weight: 119.25 kg

DRUGS (7)
  1. DEXTROAMPHET SACCHARAT, AMPHET ASPARTATE, DEXTROAMPHET SULFATE AND AMP [Suspect]
     Active Substance: AMPHETAMINE ASPARTATE\AMPHETAMINE SULFATE\DEXTROAMPHETAMINE SACCHARATE\DEXTROAMPHETAMINE SULFATE
     Indication: Attention deficit hyperactivity disorder
     Dosage: OTHER QUANTITY : 1 TABLET(S);?FREQUENCY : TWICE A DAY;?
     Route: 048
     Dates: start: 20220826, end: 20220906
  2. EFFEXOR [Concomitant]
     Active Substance: VENLAFAXINE HYDROCHLORIDE
  3. UBRELVY [Concomitant]
     Active Substance: UBROGEPANT
  4. PRAZOSIN [Concomitant]
     Active Substance: PRAZOSIN
  5. IBUPROFEN [Concomitant]
     Active Substance: IBUPROFEN
  6. NAPROXEN [Concomitant]
     Active Substance: NAPROXEN
  7. EXCEDRIN [Concomitant]
     Active Substance: ACETAMINOPHEN\ASPIRIN\CAFFEINE

REACTIONS (6)
  - Product quality issue [None]
  - Nausea [None]
  - Lethargy [None]
  - Headache [None]
  - Depressed level of consciousness [None]
  - Depressed mood [None]

NARRATIVE: CASE EVENT DATE: 20220826
